FAERS Safety Report 4903840-5 (Version None)
Quarter: 2006Q1

REPORT INFORMATION
  Report Type: 
  Country: None (occurrence: None)
  Receive Date: 20060208
  Receipt Date: 20050713
  Transmission Date: 20060701
  Serious: No
  Sender: FDA-Public Use
  Company Number: US-GLAXOSMITHKLINE-A0566096A

PATIENT
  Age: 47 Year
  Sex: Male
  Weight: 83.6 kg

DRUGS (5)
  1. PAXIL [Suspect]
     Indication: OBSESSIVE-COMPULSIVE DISORDER
     Dosage: 20MG PER DAY
     Route: 048
     Dates: start: 20050413, end: 20050701
  2. MORPHINE SULFATE [Concomitant]
  3. VICODIN [Concomitant]
  4. MULTI-VITAMIN [Concomitant]
  5. MINERAL TAB [Concomitant]

REACTIONS (4)
  - AGITATION [None]
  - DISTURBANCE IN ATTENTION [None]
  - DRUG INEFFECTIVE [None]
  - SOMNOLENCE [None]
